FAERS Safety Report 4412979-2 (Version None)
Quarter: 2004Q3

REPORT INFORMATION
  Report Type: 
  Country: None (occurrence: None)
  Receive Date: 20040802
  Receipt Date: 20040129
  Transmission Date: 20050211
  Serious: No
  Sender: FDA-Public Use
  Company Number: US-GLAXOSMITHKLINE-A0496692A

PATIENT
  Age: 4 Week
  Sex: Male

DRUGS (1)
  1. ZANTAC [Suspect]
     Indication: ILL-DEFINED DISORDER
     Route: 048
     Dates: start: 20040128

REACTIONS (3)
  - CHOKING SENSATION [None]
  - CRYING [None]
  - RETCHING [None]
